FAERS Safety Report 14356801 (Version 3)
Quarter: 2018Q3

REPORT INFORMATION
  Report Type: Spontaneous
  Country: DE (occurrence: DE)
  Receive Date: 20180105
  Receipt Date: 20180912
  Transmission Date: 20181010
  Serious: Yes (Hospitalization, Other)
  Sender: FDA-Public Use
  Company Number: PHHY2016DE185916

PATIENT
  Age: 50 Year
  Sex: Male
  Weight: 87 kg

DRUGS (22)
  1. AVASTIN [Suspect]
     Active Substance: BEVACIZUMAB
     Indication: COLORECTAL CANCER
     Dosage: 645 MG, Q3W
     Route: 042
     Dates: start: 20160209, end: 20160209
  2. AVASTIN [Suspect]
     Active Substance: BEVACIZUMAB
     Dosage: 1 MG, QW
     Route: 042
     Dates: start: 20160412
  3. AVASTIN [Suspect]
     Active Substance: BEVACIZUMAB
     Dosage: 645 MG, UNK
     Route: 042
     Dates: start: 20160412, end: 20160412
  4. OXALIPLATIN. [Suspect]
     Active Substance: OXALIPLATIN
     Indication: COLORECTAL CANCER
     Dosage: 262.6 MG, Q3W
     Route: 042
     Dates: start: 20160209, end: 20160209
  5. XELODA [Suspect]
     Active Substance: CAPECITABINE
     Dosage: 6000 MG, UNK
     Route: 048
     Dates: start: 20160613, end: 20160615
  6. OXALIPLATIN. [Suspect]
     Active Substance: OXALIPLATIN
     Dosage: 262.6 MG, Q3W
     Route: 042
     Dates: start: 20160301, end: 20160301
  7. XELODA [Suspect]
     Active Substance: CAPECITABINE
     Indication: COLORECTAL CANCER
     Dosage: 54000 MG, UNK (PER DAY FOR 14 DAYS FOLLOWED BY A BREAK OF 7 DAYS)
     Route: 048
     Dates: start: 20160209, end: 20160223
  8. XELODA [Suspect]
     Active Substance: CAPECITABINE
     Dosage: 56000 MG, (PER DAY FOR 14 DAYS FOLLOWED BY A BREAK OF 7 DAYS)
     Route: 048
     Dates: start: 20160301, end: 20160314
  9. XELODA [Suspect]
     Active Substance: CAPECITABINE
     Dosage: 56000 MG, (PER DAY FOR 14 DAYS FOLLOWED BY A BREAK OF 7 DAYS)
     Route: 048
  10. TILIDIN [Concomitant]
     Active Substance: NALOXONE HYDROCHLORIDE\TILIDINE HYDROCHLORIDE
     Indication: PRODUCT USED FOR UNKNOWN INDICATION
     Dosage: UNK
     Route: 065
  11. CAPECITABINE. [Concomitant]
     Active Substance: CAPECITABINE
     Dosage: 56000 MG, UNK
     Route: 048
     Dates: start: 20160301, end: 20160314
  12. XELODA [Suspect]
     Active Substance: CAPECITABINE
     Dosage: 4000 MG, UNK (D1?14 FOLLOWED BY 7D PAUSE)
     Route: 048
     Dates: start: 20160523, end: 20160526
  13. AVASTIN [Suspect]
     Active Substance: BEVACIZUMAB
     Dosage: 742.5 MG, Q3W
     Route: 042
     Dates: start: 20160818, end: 20160818
  14. CAPECITABINE. [Concomitant]
     Active Substance: CAPECITABINE
     Indication: COLORECTAL CANCER
     Dosage: 1 DF, UNK (54000 MGPER DAY FOR 14 DAYS FOLLOWED BY A BREAK OF 7 DAYS)
     Route: 048
     Dates: start: 20160209, end: 20160223
  15. CAPECITABINE. [Concomitant]
     Active Substance: CAPECITABINE
     Dosage: 56000 MG, UNK
     Route: 048
     Dates: start: 20160322, end: 20160404
  16. OXALIPLATIN. [Suspect]
     Active Substance: OXALIPLATIN
     Dosage: 210.08 MG, Q3W
     Route: 042
     Dates: start: 20160412, end: 20160412
  17. OXALIPLATIN. [Suspect]
     Active Substance: OXALIPLATIN
     Dosage: 262.6 MG, Q3W
     Route: 042
     Dates: start: 20160322, end: 20160322
  18. OXALIPLATIN. [Suspect]
     Active Substance: OXALIPLATIN
     Dosage: 135.2 MG, Q3W
     Route: 042
     Dates: start: 20160523
  19. OXALIPLATIN. [Suspect]
     Active Substance: OXALIPLATIN
     Dosage: UNK
     Route: 042
  20. XELODA [Suspect]
     Active Substance: CAPECITABINE
     Dosage: 49000 MG, UNK
     Route: 048
     Dates: start: 20160412, end: 20160425
  21. AVASTIN [Suspect]
     Active Substance: BEVACIZUMAB
     Dosage: 645 MG, QW
     Route: 042
     Dates: start: 20160322
  22. CAPECITABINE. [Concomitant]
     Active Substance: CAPECITABINE
     Dosage: 49000 MG, UNK
     Route: 048

REACTIONS (8)
  - Nausea [Recovered/Resolved]
  - Stoma site haemorrhage [Recovered/Resolved]
  - Dyspnoea exertional [Recovered/Resolved]
  - Stoma site haemorrhage [Not Recovered/Not Resolved]
  - Anaemia [Not Recovered/Not Resolved]
  - Myalgia [Recovered/Resolved]
  - Fatigue [Recovered/Resolved]
  - Myalgia [Recovered/Resolved]

NARRATIVE: CASE EVENT DATE: 20160210
